FAERS Safety Report 9977291 (Version 1)
Quarter: 2014Q1

REPORT INFORMATION
  Report Type: Report from Study
  Country: US (occurrence: US)
  Receive Date: 20140306
  Receipt Date: 20140306
  Transmission Date: 20141002
  Serious: No
  Sender: FDA-Public Use
  Company Number: US-ABBVIE-13P-163-1168877-00

PATIENT
  Age: 24 Year
  Sex: Male

DRUGS (3)
  1. HUMIRA [Suspect]
     Indication: COLITIS ULCERATIVE
     Dosage: LOADING DOSE
     Dates: start: 20131108
  2. PREDNISONE [Concomitant]
     Indication: COLITIS ULCERATIVE
  3. PRILOSEC [Concomitant]
     Indication: STEROID THERAPY

REACTIONS (3)
  - Influenza like illness [Not Recovered/Not Resolved]
  - Abdominal pain upper [Not Recovered/Not Resolved]
  - Diarrhoea [Not Recovered/Not Resolved]
